FAERS Safety Report 7356175-8 (Version None)
Quarter: 2011Q1

REPORT INFORMATION
  Report Type: 
  Country: None (occurrence: None)
  Receive Date: 20110316
  Receipt Date: 20110314
  Transmission Date: 20110831
  Serious: Yes (Other)
  Sender: FDA-Public Use
  Company Number: US-PFIZER INC-2011056249

PATIENT
  Sex: Female
  Weight: 68.027 kg

DRUGS (5)
  1. GABAPENTIN [Concomitant]
     Indication: PAIN
     Dosage: UNK
  2. METHOTREXATE [Concomitant]
     Indication: FIBROMYALGIA
     Dosage: UNK
  3. PLAQUENIL [Concomitant]
     Indication: RHEUMATOID ARTHRITIS
     Dosage: UNK
  4. LYRICA [Suspect]
     Indication: FIBROMYALGIA
     Dosage: 150 MG, 1X/DAY
     Route: 048
     Dates: start: 20090101, end: 20100101
  5. PREDNISONE [Concomitant]
     Dosage: UNK

REACTIONS (3)
  - ONYCHOCLASIS [None]
  - NAIL DISORDER [None]
  - NAIL BED BLEEDING [None]
